FAERS Safety Report 7454114-2 (Version None)
Quarter: 2011Q2

REPORT INFORMATION
  Report Type: 
  Country: None (occurrence: None)
  Receive Date: 20110503
  Receipt Date: 20110419
  Transmission Date: 20111010
  Serious: Yes (Other)
  Sender: FDA-Public Use
  Company Number: US-BIOGENIDEC-2011BI015004

PATIENT
  Age: 40 Year
  Sex: Female

DRUGS (1)
  1. TYSABRI [Suspect]
     Indication: MULTIPLE SCLEROSIS
     Route: 042
     Dates: start: 20110119

REACTIONS (6)
  - INCOHERENT [None]
  - CHEST DISCOMFORT [None]
  - ANAPHYLACTIC SHOCK [None]
  - HYPERVENTILATION [None]
  - ANXIETY [None]
  - BLOOD PRESSURE INCREASED [None]
